FAERS Safety Report 5499041-5 (Version None)
Quarter: 2007Q4

REPORT INFORMATION
  Report Type: 
  Country: None (occurrence: None)
  Receive Date: 20071026
  Receipt Date: 20070703
  Transmission Date: 20080405
  Serious: No
  Sender: FDA-Public Use
  Company Number: A0652380A

PATIENT
  Age: 59 Year
  Sex: Female

DRUGS (9)
  1. ADVAIR DISKUS 100/50 [Suspect]
     Indication: ASTHMA
     Dosage: 1PUFF TWICE PER DAY
     Route: 055
     Dates: start: 20070511
  2. LISINOPRIL AND HYDROCHLOROTHIAZIDE [Concomitant]
  3. MELOXICAM [Concomitant]
  4. PAROXETINE [Concomitant]
  5. SINGULAIR [Concomitant]
  6. PREVACID [Concomitant]
  7. FLUTICASONE PROPIONATE [Concomitant]
  8. ALBUTEROL [Concomitant]
  9. FLOVENT [Concomitant]

REACTIONS (2)
  - ARTHRALGIA [None]
  - MYALGIA [None]
